FAERS Safety Report 22951917 (Version 3)
Quarter: 2023Q4

REPORT INFORMATION
  Report Type: Report from Study
  Country: US (occurrence: US)
  Receive Date: 20230918
  Receipt Date: 20231005
  Transmission Date: 20240109
  Serious: Yes (Hospitalization, Other)
  Sender: FDA-Public Use
  Company Number: US-SAREPTA THERAPEUTICS INC.-SRP2023-003775

PATIENT
  Age: 20 Year
  Sex: Male

DRUGS (1)
  1. GOLODIRSEN [Suspect]
     Active Substance: GOLODIRSEN
     Indication: Duchenne muscular dystrophy
     Dosage: UNK

REACTIONS (6)
  - Psychotic disorder [Recovered/Resolved]
  - Major depression [Unknown]
  - Sleep apnoea syndrome [Unknown]
  - Hypotension [Unknown]
  - Obsessive-compulsive disorder [Unknown]
  - Paranoia [Unknown]

NARRATIVE: CASE EVENT DATE: 20230913
